FAERS Safety Report 9196462 (Version 1)
Quarter: 2013Q1

REPORT INFORMATION
  Report Type: Spontaneous
  Country: US (occurrence: US)
  Receive Date: 20130328
  Receipt Date: 20130328
  Transmission Date: 20140127
  Serious: Yes (Other)
  Sender: FDA-Public Use
  Company Number: US-COVIDIEN/TYCO HEALTHCARE/MALLINCKRODT-T201301376

PATIENT
  Age: 47 Year
  Sex: Male

DRUGS (17)
  1. OPTIRAY [Suspect]
     Indication: UROGRAM
     Dosage: 120 ML, SINGLE
     Route: 042
     Dates: start: 20130311, end: 20130311
  2. AMOXICILLIN [Concomitant]
     Dosage: UNK
  3. CYMBALTA [Concomitant]
     Dosage: UNK
  4. EPINEPHRINE [Concomitant]
     Dosage: UNK
  5. GABAPENTIN [Concomitant]
     Dosage: UNK
  6. HYDROCODONE BITARTRATE AND ACETAMINOPHEN [Concomitant]
     Dosage: UNK
  7. IBUPROFEN [Concomitant]
     Dosage: UNK
  8. IPRATROPIUM BROMIDE [Concomitant]
     Dosage: UNK
  9. KETOTIFEN [Concomitant]
     Dosage: UNK
  10. NAPROXEN [Concomitant]
     Dosage: UNK
  11. NASONEX [Concomitant]
     Dosage: UNK
  12. ZYRTEC [Concomitant]
     Dosage: UNK
  13. ROBITUSSIN                         /00048001/ [Concomitant]
     Dosage: UNK
  14. PYRIDIUM [Concomitant]
     Dosage: UNK
  15. OCEAN NASAL [Concomitant]
     Dosage: UNK
  16. PROAIR                             /00972202/ [Concomitant]
     Dosage: UNK
  17. NEOMYCIN [Concomitant]
     Dosage: UNK

REACTIONS (7)
  - Dyspnoea [Unknown]
  - Throat irritation [Unknown]
  - Hypersensitivity [Unknown]
  - Nausea [Unknown]
  - Pain [Unknown]
  - Headache [Unknown]
  - Hypotension [Unknown]
